FAERS Safety Report 5121334-1 (Version None)
Quarter: 2006Q4

REPORT INFORMATION
  Report Type: 
  Country: None (occurrence: None)
  Receive Date: 20061002
  Receipt Date: 20060925
  Transmission Date: 20070319
  Serious: Yes (Other)
  Sender: FDA-Public Use
  Company Number: B0439866A

PATIENT
  Sex: 0

DRUGS (1)
  1. AMOXIL [Suspect]
     Indication: PREMATURE RUPTURE OF MEMBRANES
     Dosage: TRANSPLACENTARY
     Route: 064

REACTIONS (2)
  - DRUG EXPOSURE DURING PREGNANCY [None]
  - NECROTISING ENTEROCOLITIS NEONATAL [None]
